FAERS Safety Report 9237087 (Version 1)
Quarter: 2013Q2

REPORT INFORMATION
  Report Type: Report from Study
  Country: US (occurrence: US)
  Receive Date: 20130417
  Receipt Date: 20130417
  Transmission Date: 20140414
  Serious: No
  Sender: FDA-Public Use
  Company Number: US-009507513-1303USA006010

PATIENT
  Sex: Female

DRUGS (8)
  1. RIBAVIRIN [Suspect]
     Indication: CHRONIC HEPATITIS C
     Dosage: 1200 MG (DIVIDED DOSES)
     Route: 048
  2. RIBAVIRIN [Suspect]
     Dosage: 1000 MG (DIVIDED DOSES)
     Route: 048
  3. RIBAVIRIN [Suspect]
     Dosage: DIVIDED DOSES
  4. RIBAVIRIN [Suspect]
     Dosage: DIVIDED DOSES
  5. PEGASYS [Suspect]
     Indication: CHRONIC HEPATITIS C
     Dosage: 180 MICROGRAM, 1 IN 1 WK
     Route: 058
  6. VICTRELIS [Suspect]
     Indication: CHRONIC HEPATITIS C
     Dosage: 4 TABLETS (3 IN 1 D)
  7. DEXILANT [Concomitant]
     Indication: OESOPHAGITIS
  8. PROCRIT [Concomitant]

REACTIONS (14)
  - Red blood cell count decreased [Unknown]
  - Weight decreased [Unknown]
  - Nausea [Unknown]
  - Rash [Unknown]
  - Rash [Unknown]
  - Haemoglobin decreased [Unknown]
  - Vomiting [Unknown]
  - Vision blurred [Unknown]
  - Eyelid function disorder [Unknown]
  - Eye disorder [Unknown]
  - Eye pruritus [Unknown]
  - Dandruff [Unknown]
  - Decreased appetite [Unknown]
  - Alopecia [Unknown]
